FAERS Safety Report 14071489 (Version 1)
Quarter: 2017Q4

REPORT INFORMATION
  Report Type: Spontaneous
  Country: US (occurrence: US)
  Receive Date: 20171010
  Receipt Date: 20171010
  Transmission Date: 20180321
  Serious: No
  Sender: FDA-Public Use
  Company Number: US-SA-2017SA128849

PATIENT
  Age: 22 Year
  Sex: Female
  Weight: 50.34 kg

DRUGS (7)
  1. RANITIDINE. [Concomitant]
     Active Substance: RANITIDINE
     Indication: PRURITUS
     Route: 065
     Dates: start: 2010
  2. OLIVE OIL [Concomitant]
     Active Substance: OLIVE OIL
     Dosage: HERBAL MOISTURIZER
     Route: 065
     Dates: start: 2014
  3. DUPIXENT [Suspect]
     Active Substance: DUPILUMAB
     Indication: DERMATITIS ATOPIC
     Route: 065
     Dates: start: 20170616
  4. SEROQUEL [Concomitant]
     Active Substance: QUETIAPINE FUMARATE
     Indication: SLEEP DISORDER
     Route: 065
     Dates: start: 2014
  5. ZYRTEC [Concomitant]
     Active Substance: CETIRIZINE HYDROCHLORIDE
     Indication: PRURITUS
     Route: 065
     Dates: start: 2010
  6. DUPIXENT [Suspect]
     Active Substance: DUPILUMAB
     Indication: ECZEMA
     Route: 065
     Dates: start: 20170616
  7. PROVENTIL HFA [Concomitant]
     Active Substance: ALBUTEROL SULFATE
     Indication: ASTHMA
     Dosage: FORM: PUFF
     Route: 065

REACTIONS (5)
  - Lacrimation increased [Recovering/Resolving]
  - Eye disorder [Recovering/Resolving]
  - Ocular hyperaemia [Recovering/Resolving]
  - Eye pruritus [Recovering/Resolving]
  - Dry eye [Recovering/Resolving]

NARRATIVE: CASE EVENT DATE: 20170704
